FAERS Safety Report 24712629 (Version 2)
Quarter: 2024Q4

REPORT INFORMATION
  Report Type: Spontaneous
  Country: CA (occurrence: CA)
  Receive Date: 20241209
  Receipt Date: 20241212
  Transmission Date: 20250115
  Serious: Yes (Other)
  Sender: PFIZER
  Company Number: CA-PFIZER INC-202400297409

PATIENT
  Age: 74 Year
  Sex: Female

DRUGS (5)
  1. RUXIENCE [Suspect]
     Active Substance: RITUXIMAB-PVVR
     Indication: Rheumatoid arthritis
     Dosage: 1000 MG, DAY 1
     Route: 042
     Dates: start: 20240410
  2. RUXIENCE [Suspect]
     Active Substance: RITUXIMAB-PVVR
     Dosage: 1000 MG, DAY 15
     Route: 042
     Dates: start: 20240424
  3. RUXIENCE [Suspect]
     Active Substance: RITUXIMAB-PVVR
     Dosage: 1000 MG, DAY 1 AND 15 (28 WEEKS AND 6 DAYS (DAY 1))
     Route: 042
     Dates: start: 20241112
  4. RUXIENCE [Suspect]
     Active Substance: RITUXIMAB-PVVR
     Dosage: 1 DF, DOSAGE INFO: UNKNOWNINFUSION WAS NOT COMPLETED
     Route: 042
     Dates: start: 20241203, end: 20241203
  5. METHOTREXATE [Concomitant]
     Active Substance: METHOTREXATE
     Indication: Rheumatoid arthritis
     Dosage: 12.5 MG, WEEKLY
     Route: 048

REACTIONS (13)
  - Systemic lupus erythematosus [Recovering/Resolving]
  - Rheumatoid arthritis [Unknown]
  - Drug ineffective [Unknown]
  - Fungal infection [Not Recovered/Not Resolved]
  - Decreased appetite [Recovering/Resolving]
  - Nausea [Recovering/Resolving]
  - Abdominal discomfort [Recovering/Resolving]
  - Rash [Unknown]
  - Acne [Unknown]
  - Off label use [Unknown]
  - Intentional product use issue [Unknown]
  - Infusion site extravasation [Unknown]
  - Poor venous access [Unknown]

NARRATIVE: CASE EVENT DATE: 20240101
